FAERS Safety Report 5219101-3 (Version None)
Quarter: 2007Q1

REPORT INFORMATION
  Report Type: 
  Country: None (occurrence: None)
  Receive Date: 20070123
  Receipt Date: 20070109
  Transmission Date: 20070707
  Serious: Yes (Hospitalization)
  Sender: FDA-Public Use
  Company Number: US019026

PATIENT
  Age: 49 Year
  Sex: Female

DRUGS (2)
  1. PROVIGIL [Suspect]
     Indication: SLEEP DISORDER
     Dosage: 200 MG QD ORAL
     Route: 048
     Dates: start: 20061103, end: 20061201
  2. PREDNISONE [Concomitant]

REACTIONS (2)
  - HYPERAESTHESIA [None]
  - TOXIC EPIDERMAL NECROLYSIS [None]
